FAERS Safety Report 6492957-2 (Version None)
Quarter: 2009Q4

REPORT INFORMATION
  Report Type: 
  Country: None (occurrence: None)
  Receive Date: 20091211
  Receipt Date: 20091211
  Transmission Date: 20100525
  Serious: Yes (Hospitalization)
  Sender: FDA-Public Use
  Company Number: None

PATIENT
  Age: 62 Year
  Sex: Female
  Weight: 58.9676 kg

DRUGS (2)
  1. INVANZ [Suspect]
     Indication: INFECTION
     Dosage: DAILY IV DRIP
     Route: 041
     Dates: start: 20090818, end: 20090904
  2. VANCOMYCIN [Suspect]
     Indication: INFECTION
     Dosage: DAILY IV DRIP
     Route: 041
     Dates: start: 20090818, end: 20090904

REACTIONS (2)
  - AMNESIA [None]
  - CHEST PAIN [None]
